FAERS Safety Report 23037937 (Version 1)
Quarter: 2023Q4

REPORT INFORMATION
  Report Type: Spontaneous
  Country: CN (occurrence: CN)
  Receive Date: 20231006
  Receipt Date: 20231006
  Transmission Date: 20240110
  Serious: Yes (Other)
  Sender: FDA-Public Use
  Company Number: CN-ROCHE-3429183

PATIENT
  Age: 35 Year
  Sex: Female
  Weight: 52 kg

DRUGS (5)
  1. CAPECITABINE [Suspect]
     Active Substance: CAPECITABINE
     Indication: Breast cancer
     Dosage: DAILY DOSE: 1.5 GRAM
     Route: 048
     Dates: start: 20230829
  2. CAPECITABINE [Suspect]
     Active Substance: CAPECITABINE
     Indication: Breast cancer
  3. INVESTIGATIONAL PRODUCT [Suspect]
     Active Substance: INVESTIGATIONAL PRODUCT
     Indication: Breast cancer
     Dosage: ROA: INTRAVENOUS DRIP?DAILY DOSE: 44 MILLIGRAM
     Route: 042
     Dates: start: 20230808, end: 20230812
  4. INVESTIGATIONAL PRODUCT [Suspect]
     Active Substance: INVESTIGATIONAL PRODUCT
     Indication: Breast cancer
     Dosage: ROA: INTRAVENOUS DRIP?DAILY DOSE: 44 MILLIGRAM
     Route: 042
     Dates: start: 20230829, end: 20230831
  5. INVESTIGATIONAL PRODUCT [Suspect]
     Active Substance: INVESTIGATIONAL PRODUCT
     Indication: Breast cancer
     Dosage: ROA: INTRAVENOUS DRIP?DAILY DOSE: 40 MILLIGRAM
     Route: 042
     Dates: start: 20230831

REACTIONS (3)
  - Peripheral nerve injury [Recovering/Resolving]
  - Peripheral paralysis [Recovering/Resolving]
  - Neuropathy peripheral [Unknown]

NARRATIVE: CASE EVENT DATE: 20230801
